FAERS Safety Report 8214523-0 (Version None)
Quarter: 2012Q1

REPORT INFORMATION
  Report Type: 
  Country: None (occurrence: None)
  Receive Date: 20120313
  Receipt Date: 20120303
  Transmission Date: 20120608
  Serious: Yes (Other)
  Sender: FDA-Public Use
  Company Number: 2012-00076

PATIENT
  Age: 19 Year
  Sex: Female

DRUGS (2)
  1. OXYMETAZOLINE HYDROCHLORIDE SPRAY [Suspect]
     Indication: NASAL CONGESTION
     Dosage: 2 SPRAYS IN EACH NOSTRIL
     Dates: start: 20111001
  2. OXYMETAZOLINE HYDROCHLORIDE SPRAY [Suspect]
     Indication: UPPER-AIRWAY COUGH SYNDROME
     Dosage: 2 SPRAYS IN EACH NOSTRIL
     Dates: start: 20111001

REACTIONS (1)
  - INCORRECT DRUG ADMINISTRATION DURATION [None]
